FAERS Safety Report 8576346-2 (Version None)
Quarter: 2012Q3

REPORT INFORMATION
  Report Type: 
  Country: None (occurrence: None)
  Receive Date: 20120724
  Receipt Date: 20120713
  Transmission Date: 20120928
  Serious: Yes (Hospitalization)
  Sender: FDA-Public Use
  Company Number: AUR-APL-2012-02953

PATIENT
  Age: 78 Year
  Sex: Female
  Weight: 61 kg

DRUGS (10)
  1. SIMVASTATIN [Suspect]
     Indication: HYPERCHOLESTEROLAEMIA
     Dosage: 40 MG (40 MG, 1 IN 1 D), ORAL
     Route: 048
     Dates: start: 20110615, end: 20110714
  2. PLAVIX [Concomitant]
  3. LERCANIDIPINE [Concomitant]
  4. EPLERENONE/PLACEBO (EPLERENONE) [Suspect]
     Indication: PRODUCT USED FOR UNKNOWN INDICATION
     Dosage: DAILY, ORAL
     Route: 048
     Dates: start: 20110616, end: 20110715
  5. BISOPROLOL FUMARATE [Concomitant]
  6. ASPIRIN [Concomitant]
  7. ALISKIREN (ALISKIREN) [Concomitant]
  8. ZOLPIDEM [Concomitant]
  9. EZETIMIBE [Concomitant]
  10. CLEMASTINE FUMARATE [Concomitant]

REACTIONS (3)
  - DYSARTHRIA [None]
  - LEUKOPENIA [None]
  - PYREXIA [None]
